FAERS Safety Report 7255836-9 (Version None)
Quarter: 2011Q1

REPORT INFORMATION
  Report Type: 
  Country: None (occurrence: None)
  Receive Date: 20110129
  Receipt Date: 20100520
  Transmission Date: 20110831
  Serious: No
  Sender: FDA-Public Use
  Company Number: US-ABBOTT-10P-163-0646089-00

PATIENT
  Sex: Female

DRUGS (11)
  1. HUMIRA [Suspect]
     Indication: RHEUMATOID ARTHRITIS
     Dates: start: 20100520
  2. SINGULAIR [Concomitant]
     Indication: SINUS DISORDER
  3. ALLEGRA [Concomitant]
     Indication: SINUS DISORDER
  4. ARAVA [Concomitant]
     Indication: ARTHRITIS
  5. ATARAX [Concomitant]
     Indication: ECZEMA
  6. LEVBID [Concomitant]
     Indication: GASTRIC DISORDER
     Route: 048
  7. PLAVIX [Concomitant]
     Indication: PRODUCT USED FOR UNKNOWN INDICATION
  8. ZETIA [Concomitant]
     Indication: BLOOD CHOLESTEROL
     Route: 048
  9. PREVACID [Concomitant]
     Indication: GASTRIC DISORDER
  10. PREDNISONE [Concomitant]
     Indication: ARTHRITIS
  11. PILOCARPINE HCL [Concomitant]
     Indication: DRY MOUTH

REACTIONS (1)
  - INJECTION SITE PAIN [None]
